FAERS Safety Report 13273705 (Version 1)
Quarter: 2017Q1

REPORT INFORMATION
  Report Type: Spontaneous
  Country: US (occurrence: US)
  Receive Date: 20170227
  Receipt Date: 20170227
  Transmission Date: 20170428
  Serious: Yes (Other)
  Sender: FDA-Public Use
  Company Number: US-PFIZER INC-2017079896

PATIENT
  Age: 43 Year
  Sex: Female

DRUGS (5)
  1. PEGFILGRASTIM [Concomitant]
     Active Substance: PEGFILGRASTIM
     Indication: POSTOPERATIVE CARE
     Dosage: UNK
  2. DOXORUBICIN [Concomitant]
     Active Substance: DOXORUBICIN
     Indication: POSTOPERATIVE CARE
     Dosage: UNK, CYCLIC ( FOUR CYCLES)
  3. PACLITAXEL. [Suspect]
     Active Substance: PACLITAXEL
     Indication: POSTOPERATIVE CARE
     Dosage: 175 MG/M2, CYCLIC ( ONCE EVERY 2 WEEKS)
  4. LORAZEPAM. [Concomitant]
     Active Substance: LORAZEPAM
     Dosage: 0.5 MG, AS NEEDED
  5. CYCLOPHOSPHAMIDE. [Concomitant]
     Active Substance: CYCLOPHOSPHAMIDE
     Indication: POSTOPERATIVE CARE
     Dosage: UNK, CYCLIC ( EVERY 2 WEEKS)

REACTIONS (1)
  - Glomerulonephritis [Recovered/Resolved]
